FAERS Safety Report 5069172-2 (Version None)
Quarter: 2006Q3

REPORT INFORMATION
  Report Type: 
  Country: None (occurrence: None)
  Receive Date: 20060717
  Receipt Date: 20060323
  Transmission Date: 20061208
  Serious: No
  Sender: FDA-Public Use
  Company Number: 2006000702

PATIENT
  Age: 68 Year
  Sex: Male

DRUGS (3)
  1. TARCEVA [Suspect]
     Indication: NON-SMALL CELL LUNG CANCER
     Dosage: SEE IMAGE
     Route: 048
  2. VITAMINS [Concomitant]
  3. HYPERTENSIVE MEDICATIONS [Concomitant]

REACTIONS (6)
  - DIARRHOEA [None]
  - FAECES DISCOLOURED [None]
  - MUSCLE SPASMS [None]
  - PRURITUS [None]
  - STOMACH DISCOMFORT [None]
  - URTICARIA [None]
